FAERS Safety Report 8134010-8 (Version None)
Quarter: 2012Q1

REPORT INFORMATION
  Report Type: 
  Country: None (occurrence: None)
  Receive Date: 20120213
  Receipt Date: 20120203
  Transmission Date: 20120608
  Serious: Yes (Other)
  Sender: FDA-Public Use
  Company Number: US-BRISTOL-MYERS SQUIBB COMPANY-16321515

PATIENT
  Age: 66 Year
  Sex: Female
  Weight: 39 kg

DRUGS (8)
  1. PROAIR HFA [Concomitant]
  2. FOSAMAX [Concomitant]
  3. NIFEDIPINE [Concomitant]
  4. PYRIDOSTIGMINE BROMIDE [Concomitant]
  5. SPRYCEL [Suspect]
     Indication: CHRONIC MYELOID LEUKAEMIA
     Dosage: JAN2011
     Dates: start: 20101213
  6. COUMADIN [Concomitant]
     Dosage: 1DF:5/2MG
  7. CLONAZEPAM [Concomitant]
  8. SIMVASTATIN [Concomitant]

REACTIONS (7)
  - PHOTOSENSITIVITY REACTION [None]
  - APHTHOUS STOMATITIS [None]
  - VISUAL IMPAIRMENT [None]
  - CATARACT [None]
  - ALOPECIA [None]
  - EYE SWELLING [None]
  - WEIGHT DECREASED [None]
